FAERS Safety Report 5596270-7 (Version None)
Quarter: 2007Q4

REPORT INFORMATION
  Report Type: 
  Country: None (occurrence: None)
  Receive Date: 20071218
  Receipt Date: 20070110
  Transmission Date: 20080405
  Serious: Yes (Other)
  Sender: FDA-Public Use
  Company Number: 2006045112

PATIENT
  Age: 47 Year
  Sex: Male
  Weight: 124.7 kg

DRUGS (3)
  1. BEXTRA [Suspect]
     Indication: ILL-DEFINED DISORDER
     Dates: start: 20031201, end: 20040501
  2. ZOCOR [Concomitant]
  3. VYTORIN [Concomitant]

REACTIONS (1)
  - MYOCARDIAL INFARCTION [None]
